FAERS Safety Report 21092899 (Version 1)
Quarter: 2022Q3

REPORT INFORMATION
  Report Type: Spontaneous
  Country: RO (occurrence: RO)
  Receive Date: 20220718
  Receipt Date: 20220718
  Transmission Date: 20221026
  Serious: Yes (Hospitalization)
  Sender: FDA-Public Use
  Company Number: RO-NOVOPROD-796246

PATIENT
  Age: 52 Year
  Sex: Female

DRUGS (4)
  1. OZEMPIC [Suspect]
     Active Substance: SEMAGLUTIDE
     Indication: Product used for unknown indication
     Dosage: 0.25 MG
     Route: 065
     Dates: start: 20201021
  2. OZEMPIC [Suspect]
     Active Substance: SEMAGLUTIDE
     Indication: Product used for unknown indication
     Dosage: UNK
     Route: 065
     Dates: start: 20210108
  3. ROSUVASTATIN [Concomitant]
     Active Substance: ROSUVASTATIN
     Indication: Dyslipidaemia
     Dosage: 10 MG
  4. NOLIPREL [INDAPAMIDE;PERINDOPRIL ERBUMINE] [Concomitant]
     Indication: Hypertension
     Dosage: 5 MG
     Route: 065

REACTIONS (2)
  - Anal fissure [Unknown]
  - Constipation [Unknown]

NARRATIVE: CASE EVENT DATE: 20210217
